FAERS Safety Report 7363913-7 (Version None)
Quarter: 2011Q1

REPORT INFORMATION
  Report Type: 
  Country: None (occurrence: None)
  Receive Date: 20110321
  Receipt Date: 20110211
  Transmission Date: 20110831
  Serious: No
  Sender: FDA-Public Use
  Company Number: US-BAYER-2011-014958

PATIENT
  Sex: Female
  Weight: 58 kg

DRUGS (5)
  1. SYNTHROID [Concomitant]
  2. DIOVAN [Concomitant]
  3. ALEVE (CAPLET) [Suspect]
     Indication: PRODUCT USED FOR UNKNOWN INDICATION
     Dosage: DAILY DOSE 1 DF
     Route: 048
     Dates: start: 20101201, end: 20101201
  4. ARIMIDEX [Concomitant]
  5. LORAZEPAM [Concomitant]

REACTIONS (1)
  - HEART RATE INCREASED [None]
